FAERS Safety Report 4474724-4 (Version None)
Quarter: 2004Q3

REPORT INFORMATION
  Report Type: 
  Country: None (occurrence: None)
  Receive Date: 20040923
  Receipt Date: 20040701
  Transmission Date: 20050211
  Serious: No
  Sender: FDA-Public Use
  Company Number: USA040771586

PATIENT
  Age: 80 Year
  Sex: Female
  Weight: 93 kg

DRUGS (2)
  1. FORTEO [Suspect]
     Indication: OSTEOPOROSIS
     Dosage: 20 UG/1 DAY
     Dates: start: 20040325
  2. CALCIUM AND VITAMIN D [Concomitant]

REACTIONS (2)
  - BREAST CYST [None]
  - INJECTION SITE HAEMORRHAGE [None]
